FAERS Safety Report 8130074-6 (Version None)
Quarter: 2011Q4

REPORT INFORMATION
  Report Type: 
  Country: None (occurrence: None)
  Receive Date: 20111227
  Receipt Date: 20110927
  Transmission Date: 20120403
  Serious: No
  Sender: FDA-Public Use
  Company Number: PHEH2011US03285

PATIENT
  Age: 63 Year
  Sex: Male

DRUGS (11)
  1. GILENYA [Suspect]
     Dosage: 0.5 MG, QD, ORAL
     Route: 048
  2. BACLOFEN (BACLOFEN) TABLET, 10 MG [Concomitant]
  3. BENICAR HCT [Concomitant]
  4. AMITRIPTYLINE HCL [Concomitant]
  5. LEXAPRO [Concomitant]
  6. FAMPRIDINE (FAMPRIDINE) TABLET, 10 MG [Concomitant]
  7. FENOFIBRATE [Concomitant]
  8. ZOLPIDEM [Concomitant]
  9. GILENYA [Suspect]
     Indication: MULTIPLE SCLEROSIS
     Dosage: 0.5 MG, QD, ORAL
     Route: 048
     Dates: start: 20110815
  10. BYSTOLIC [Concomitant]
  11. TAMSULOSIN HCL [Concomitant]

REACTIONS (6)
  - BACK PAIN [None]
  - FEELING ABNORMAL [None]
  - DIZZINESS [None]
  - HEADACHE [None]
  - INSOMNIA [None]
  - DRY MOUTH [None]
